FAERS Safety Report 5714105-6 (Version None)
Quarter: 2008Q2

REPORT INFORMATION
  Report Type: 
  Country: None (occurrence: None)
  Receive Date: 20080421
  Receipt Date: 20080417
  Transmission Date: 20081010
  Serious: Yes (Other)
  Sender: FDA-Public Use
  Company Number: SP01870

PATIENT
  Age: 43 Year
  Sex: Male

DRUGS (4)
  1. MOVIPREP [Suspect]
     Indication: COLONOSCOPY
     Dosage: 1 LIT (ONCE), ORAL
     Route: 048
     Dates: start: 20080403, end: 20080403
  2. ESOMEPRAZOLE [Concomitant]
  3. FORMOTEROL FUMARATE [Concomitant]
  4. BUDESONIDE [Concomitant]

REACTIONS (4)
  - ASTHMA [None]
  - MENTAL DISORDER [None]
  - NAUSEA [None]
  - VOMITING [None]
